FAERS Safety Report 9797518 (Version 3)
Quarter: 2014Q1

REPORT INFORMATION
  Report Type: Report from Study
  Country: AU (occurrence: AU)
  Receive Date: 20140106
  Receipt Date: 20140108
  Transmission Date: 20141002
  Serious: Yes (Death, Hospitalization)
  Sender: FDA-Public Use
  Company Number: PHHY2011AU118629

PATIENT
  Age: 85 Year
  Sex: Female

DRUGS (12)
  1. ACLASTA [Suspect]
     Dosage: 5 MG, UNK
     Route: 042
     Dates: start: 20100303
  2. ACLASTA [Suspect]
     Dosage: 5 MG, UNK
     Route: 042
     Dates: start: 20110202
  3. ACLASTA [Suspect]
     Dosage: 5 MG, UNK
     Route: 042
     Dates: start: 20111209
  4. METHOTREXATE [Concomitant]
     Indication: PLASMA CELL MYELOMA
     Dosage: UNK UKN, UNK
  5. NEXUM [Concomitant]
     Dosage: UNK UKN, UNK
  6. OLMETEC [Concomitant]
     Dosage: UNK UKN, UNK
  7. PREDNISOLONE [Concomitant]
     Dosage: UNK UKN, UNK
  8. LIPOSTAT [Concomitant]
     Dosage: UNK UKN, UNK
  9. PARACETAMOL [Concomitant]
     Dosage: UNK UKN, UNK
  10. IMMUNOSUPPRESSANTS [Concomitant]
     Dosage: UNK UKN, UNK
  11. ANTINEOPLASTIC AGENTS [Concomitant]
     Dosage: UNK UKN, UNK
  12. ANGIOTENSIN II ANTAGONISTS [Concomitant]
     Dosage: UNK UKN, UNK

REACTIONS (9)
  - Pneumonia [Fatal]
  - Neutropenia [Fatal]
  - Plasma cell myeloma [Fatal]
  - Renal failure acute [Fatal]
  - Respiratory failure [Fatal]
  - Pyrexia [Unknown]
  - Dehydration [Unknown]
  - Urine output decreased [Unknown]
  - Inappropriate schedule of drug administration [Not Recovered/Not Resolved]
